FAERS Safety Report 9225557 (Version 12)
Quarter: 2015Q4

REPORT INFORMATION
  Report Type: Report from Study
  Country: CA (occurrence: CA)
  Receive Date: 20130411
  Receipt Date: 20151210
  Transmission Date: 20160305
  Serious: Yes (Hospitalization, Other)
  Sender: FDA-Public Use
  Company Number: CA-ROCHE-1212682

PATIENT
  Age: 68 Year
  Sex: Female

DRUGS (6)
  1. ADVIL [Concomitant]
     Active Substance: IBUPROFEN
     Route: 065
     Dates: start: 20140219
  2. AVASTIN [Suspect]
     Active Substance: BEVACIZUMAB
     Route: 042
     Dates: end: 20140616
  3. ELTROXIN [Concomitant]
     Active Substance: LEVOTHYROXINE
     Dosage: TAKEN FOR } 32 YEARS
     Route: 065
  4. HERCEPTIN [Suspect]
     Active Substance: TRASTUZUMAB
     Indication: OVARIAN CANCER
     Dosage: LAST TRASTUZUMAB DOSE WAS ON  28/NOV/2014
     Route: 042
     Dates: start: 20140303, end: 20151028
  5. TYLENOL WITH CODEINE [Concomitant]
     Active Substance: ACETAMINOPHEN\CODEINE PHOSPHATE
  6. AVASTIN [Suspect]
     Active Substance: BEVACIZUMAB
     Indication: OVARIAN CANCER
     Route: 042
     Dates: start: 20120104, end: 20140616

REACTIONS (14)
  - Pain [Not Recovered/Not Resolved]
  - Drug ineffective [Unknown]
  - Protein urine present [Unknown]
  - Disease progression [Unknown]
  - Fatigue [Unknown]
  - Small intestinal obstruction [Unknown]
  - Alanine aminotransferase abnormal [Unknown]
  - Gamma-glutamyltransferase increased [Unknown]
  - Hypokinesia [Unknown]
  - Off label use [Unknown]
  - Nausea [Not Recovered/Not Resolved]
  - Neoplasm [Unknown]
  - Hyperlipidaemia [Unknown]
  - Tumour marker increased [Not Recovered/Not Resolved]

NARRATIVE: CASE EVENT DATE: 20130819
